FAERS Safety Report 8593401-1 (Version None)
Quarter: 2012Q3

REPORT INFORMATION
  Report Type: 
  Country: None (occurrence: None)
  Receive Date: 20120814
  Receipt Date: 20120806
  Transmission Date: 20120928
  Serious: Yes (Hospitalization, Other)
  Sender: FDA-Public Use
  Company Number: PHHY2012DE064402

PATIENT
  Sex: Female

DRUGS (3)
  1. GILENYA [Suspect]
     Indication: MULTIPLE SCLEROSIS
     Dosage: 0.5 MG, QD
     Route: 048
     Dates: start: 20110616, end: 20120717
  2. RESTEX [Concomitant]
     Indication: RESTLESS LEGS SYNDROME
     Dosage: 100 MG, UNK
     Route: 048
     Dates: start: 20080115
  3. TRIMIPRAMINE MALEATE [Concomitant]
     Indication: SLEEP DISORDER
     Dosage: 10 DRP, PRN
     Route: 048
     Dates: start: 20120127

REACTIONS (5)
  - NON-HODGKIN'S LYMPHOMA [None]
  - TACHYCARDIA [None]
  - DYSPNOEA [None]
  - PLEURAL EFFUSION [None]
  - PNEUMOTHORAX [None]
